FAERS Safety Report 23069606 (Version 2)
Quarter: 2023Q4

REPORT INFORMATION
  Report Type: Spontaneous
  Country: MX (occurrence: MX)
  Receive Date: 20231016
  Receipt Date: 20231221
  Transmission Date: 20240110
  Serious: Yes (Other)
  Sender: FDA-Public Use
  Company Number: MX-BEH-2023164143

PATIENT
  Sex: Male

DRUGS (1)
  1. HUMAN IMMUNOGLOBULIN G [Suspect]
     Active Substance: HUMAN IMMUNOGLOBULIN G
     Indication: Product used for unknown indication
     Route: 064

REACTIONS (8)
  - Atrioventricular block complete [Unknown]
  - Foetal exposure during pregnancy [Unknown]
  - Bradyarrhythmia [Unknown]
  - Foetal exposure during pregnancy [Unknown]
  - Neonatal lupus erythematosus [Unknown]
  - Foetal exposure during pregnancy [Unknown]
  - Antinuclear antibody positive [Unknown]
  - Foetal exposure during pregnancy [Unknown]
